FAERS Safety Report 5609519-9 (Version None)
Quarter: 2008Q1

REPORT INFORMATION
  Report Type: 
  Country: None (occurrence: None)
  Receive Date: 20080131
  Receipt Date: 20080118
  Transmission Date: 20080703
  Serious: Yes (Other)
  Sender: FDA-Public Use
  Company Number: US-ELI_LILLY_AND_COMPANY-US200801004870

PATIENT
  Age: 45 Year
  Sex: Male

DRUGS (3)
  1. PROZAC [Suspect]
     Indication: DEPRESSION
     Dosage: 40 MG, DAILY (1/D)
     Dates: start: 19920101
  2. PROZAC [Suspect]
     Dosage: 20 MG, UNK
  3. PROZAC [Suspect]
     Dosage: 40 MG, UNK

REACTIONS (8)
  - CHILLS [None]
  - DRUG WITHDRAWAL SYNDROME [None]
  - FEAR [None]
  - HYPERHIDROSIS [None]
  - IMPAIRED WORK ABILITY [None]
  - INSOMNIA [None]
  - SUICIDAL IDEATION [None]
  - TREMOR [None]
